FAERS Safety Report 5207493-0 (Version None)
Quarter: 2006Q4

REPORT INFORMATION
  Report Type: 
  Country: None (occurrence: None)
  Receive Date: 20061030
  Receipt Date: 20060407
  Transmission Date: 20070319
  Serious: No
  Sender: FDA-Public Use
  Company Number: 2006CT000565

PATIENT
  Age: 73 Year
  Sex: Male
  Weight: 101.6057 kg

DRUGS (6)
  1. VENTAVIS [Suspect]
     Indication: PULMONARY HYPERTENSION
     Dosage: 5 UG; 6TO9X/DAY; INH
     Route: 055
     Dates: start: 20060215
  2. VENTAVIS [Suspect]
     Indication: PULMONARY HYPERTENSION
     Dosage: 5 UG; 6TO8X/DAY; INH
     Route: 055
  3. VENTAVIS [Suspect]
     Indication: PULMONARY HYPERTENSION
     Dosage: 5UG; 6 - 7X/DAY; INH
     Route: 055
  4. VENTAVIS [Suspect]
     Indication: PULMONARY HYPERTENSION
     Dosage: 5 UG; 6TO9X/DAY; INH
     Route: 055
     Dates: end: 20060609
  5. TORSEMIDE [Concomitant]
  6. POTASSIUM CHLORIDE [Concomitant]

REACTIONS (3)
  - HEADACHE [None]
  - MEMORY IMPAIRMENT [None]
  - PULMONARY HYPERTENSION [None]
